FAERS Safety Report 10403936 (Version 1)
Quarter: 2014Q1

REPORT INFORMATION
  Report Type: Spontaneous
  Country: US (occurrence: None)
  Receive Date: 20130815
  Receipt Date: 20130815
  Transmission Date: 20141002
  Serious: Yes (Other)
  Sender: FDA-Public Use
  Company Number: ADR-2013-00095

PATIENT
  Age: 73 Year
  Sex: Male

DRUGS (4)
  1. BACLOFEN [Suspect]
     Indication: MUSCLE SPASTICITY
  2. GABAPENTIN [Concomitant]
  3. FLEXERIL [Concomitant]
  4. TIZANIDINE [Concomitant]

REACTIONS (3)
  - Convulsion [None]
  - Tremor [None]
  - Muscle spasms [None]
